FAERS Safety Report 7533597-3 (Version None)
Quarter: 2011Q2

REPORT INFORMATION
  Report Type: 
  Country: None (occurrence: None)
  Receive Date: 20110608
  Receipt Date: 20060227
  Transmission Date: 20111010
  Serious: Yes (Hospitalization, Other)
  Sender: FDA-Public Use
  Company Number: PHMT2006CA00571

PATIENT
  Sex: Female

DRUGS (9)
  1. ASAPHEN [Concomitant]
  2. GLYCERIN SUPPOSITORIES [Concomitant]
  3. AMANTADINE HCL [Concomitant]
  4. ALTACE [Concomitant]
  5. ATENOLOL [Concomitant]
  6. LACTULOSE [Concomitant]
  7. LOXAPINE HCL [Concomitant]
  8. SANDOSTATIN LAR [Suspect]
     Indication: ACROMEGALY
     Dosage: 30 MG
     Dates: start: 20050727
  9. HYDROCHLOROTHIAZIDE [Concomitant]

REACTIONS (5)
  - GASTROINTESTINAL HAEMORRHAGE [None]
  - VOMITING [None]
  - MALAISE [None]
  - SEPSIS [None]
  - LOSS OF CONSCIOUSNESS [None]
